FAERS Safety Report 5828887-6 (Version None)
Quarter: 2008Q3

REPORT INFORMATION
  Report Type: 
  Country: None (occurrence: None)
  Receive Date: 20080729
  Receipt Date: 20080729
  Transmission Date: 20090109
  Serious: Yes (Hospitalization, Other)
  Sender: FDA-Public Use
  Company Number: 1000000259

PATIENT
  Age: 53 Year
  Sex: Male

DRUGS (5)
  1. CITALOPRAM HYDROBROMIDE [Suspect]
     Dosage: 20 MG (20 MG, 1 IN 1 D), ORAL
     Route: 048
     Dates: end: 20080411
  2. DEPAKENE [Suspect]
     Dates: start: 20080219, end: 20080320
  3. SEROQUEL [Concomitant]
  4. ZYPREXA [Concomitant]
  5. SELOKEN [Concomitant]

REACTIONS (3)
  - AGGRESSION [None]
  - HYPONATRAEMIA [None]
  - MOOD ALTERED [None]
